FAERS Safety Report 10761925 (Version 1)
Quarter: 2015Q1

REPORT INFORMATION
  Report Type: Spontaneous
  Country: US (occurrence: None)
  Receive Date: 20150128
  Receipt Date: 20150128
  Transmission Date: 20150721
  Serious: Yes (Other)
  Sender: FDA-Public Use
  Company Number: 1446466

PATIENT
  Age: 64 Year
  Sex: Female

DRUGS (2)
  1. RITUXAN [Suspect]
     Active Substance: RITUXIMAB
     Indication: PRODUCT USED FOR UNKNOWN INDICATION
     Dosage: 1 IN 1 M
     Route: 042
  2. IMBRUVICA [Concomitant]
     Active Substance: IBRUTINIB

REACTIONS (6)
  - Neutropenia [None]
  - Arthralgia [None]
  - Paraesthesia [None]
  - Myalgia [None]
  - Hypoaesthesia [None]
  - Pain in extremity [None]
